FAERS Safety Report 9201785 (Version 1)
Quarter: 2013Q1

REPORT INFORMATION
  Report Type: Spontaneous
  Country: FR (occurrence: None)
  Receive Date: 20130327
  Receipt Date: 20130327
  Transmission Date: 20140127
  Serious: Yes (Life-Threatening, Hospitalization, Other)
  Sender: FDA-Public Use
  Company Number: 2013-000779

PATIENT
  Age: 70 Year
  Sex: Female
  Weight: 68.5 kg

DRUGS (7)
  1. ACTONEL [Suspect]
     Dosage: 2 CYCLIC DOSES
     Route: 048
     Dates: end: 20121111
  2. ARAVA [Suspect]
     Route: 048
     Dates: start: 201210, end: 201211
  3. CORTANCYL [Suspect]
     Route: 048
     Dates: start: 201002, end: 20121111
  4. KENZEN [Suspect]
     Route: 048
     Dates: end: 201211
  5. OMEPRAZOLE (OMEPRAZOLE) [Suspect]
     Route: 048
     Dates: end: 201211
  6. BISOPROLOL (BISOPROLOL) [Concomitant]
  7. TAHOR (ATORVASTATIN CALCIUM) [Concomitant]

REACTIONS (12)
  - Leukopenia [None]
  - Thrombocytopenia [None]
  - Anaemia [None]
  - Septic shock [None]
  - Multi-organ failure [None]
  - Tooth fracture [None]
  - Swelling face [None]
  - Drug ineffective [None]
  - Chills [None]
  - Dyspnoea [None]
  - Cough [None]
  - Oropharyngeal pain [None]
